FAERS Safety Report 18434270 (Version 2)
Quarter: 2020Q4

REPORT INFORMATION
  Report Type: Spontaneous
  Country: US (occurrence: US)
  Receive Date: 20201027
  Receipt Date: 20201029
  Transmission Date: 20210114
  Serious: No
  Sender: FDA-Public Use
  Company Number: NVSC2020US285248

PATIENT
  Sex: Female

DRUGS (1)
  1. BIMATOPROST. [Suspect]
     Active Substance: BIMATOPROST
     Indication: PRODUCT USE IN UNAPPROVED INDICATION
     Dosage: ONE TIME DAILYEVENING
     Route: 065

REACTIONS (2)
  - Product confusion [Unknown]
  - Wrong product administered [Unknown]
